FAERS Safety Report 15735038 (Version 1)
Quarter: 2018Q4

REPORT INFORMATION
  Report Type: Report from Study
  Country: SI (occurrence: SI)
  Receive Date: 20181218
  Receipt Date: 20181218
  Transmission Date: 20190205
  Serious: Yes (Death, Other)
  Sender: FDA-Public Use
  Company Number: SI-B.I. PHARMACEUTICALS,INC./RIDGEFIELD-2018-BI-060416

PATIENT
  Age: 78 Year
  Sex: Female

DRUGS (2)
  1. ACTILYSE [Suspect]
     Active Substance: ALTEPLASE
     Indication: CEREBRAL ARTERY OCCLUSION
     Dosage: 0.9MGKG OF BODY WEIGHT
     Route: 065
  2. PRAXBIND [Suspect]
     Active Substance: IDARUCIZUMAB
     Indication: PROCOAGULANT THERAPY
     Dosage: 5 GM OF IDARUCIZUMAB
     Route: 065

REACTIONS (3)
  - Pneumonia aspiration [Unknown]
  - Cerebral haemorrhage [Unknown]
  - Cardiopulmonary failure [Fatal]
